FAERS Safety Report 7415378-4 (Version None)
Quarter: 2011Q2

REPORT INFORMATION
  Report Type: 
  Country: None (occurrence: None)
  Receive Date: 20110414
  Receipt Date: 20110404
  Transmission Date: 20111010
  Serious: Yes (Life-Threatening, Hospitalization)
  Sender: FDA-Public Use
  Company Number: B0710534A

PATIENT
  Sex: Male

DRUGS (2)
  1. ARIXTRA [Suspect]
     Indication: ATRIAL FIBRILLATION
     Dosage: 7.5MG PER DAY
     Route: 058
     Dates: start: 20101206, end: 20101210
  2. PREVISCAN [Suspect]
     Indication: ATRIAL FIBRILLATION
     Route: 048
     Dates: start: 20101201, end: 20101210

REACTIONS (9)
  - DIZZINESS [None]
  - PALLOR [None]
  - HYPOTHERMIA [None]
  - ABDOMINAL PAIN [None]
  - PERITONEAL HAEMORRHAGE [None]
  - STAPHYLOCOCCAL INFECTION [None]
  - HAEMOGLOBIN DECREASED [None]
  - OFF LABEL USE [None]
  - DIARRHOEA [None]
